FAERS Safety Report 7864990-7 (Version None)
Quarter: 2011Q4

REPORT INFORMATION
  Report Type: 
  Country: None (occurrence: None)
  Receive Date: 20111028
  Receipt Date: 20100927
  Transmission Date: 20120403
  Serious: No
  Sender: FDA-Public Use
  Company Number: US-GLAXOSMITHKLINE-A0883537A

PATIENT
  Sex: Female

DRUGS (6)
  1. PROGESTERONE [Concomitant]
  2. ADVAIR DISKUS 100/50 [Suspect]
     Indication: CHRONIC OBSTRUCTIVE PULMONARY DISEASE
     Dosage: 1PUFF TWICE PER DAY
     Route: 055
     Dates: start: 20100701
  3. PREDNISONE [Concomitant]
  4. DIGOXIN [Concomitant]
  5. BYSTOLIC [Concomitant]
  6. ESTROGENIC SUBSTANCE [Concomitant]

REACTIONS (2)
  - RASH [None]
  - ORAL MUCOSAL ERUPTION [None]
